FAERS Safety Report 9757844 (Version 3)
Quarter: 2014Q1

REPORT INFORMATION
  Report Type: Spontaneous
  Country: JP (occurrence: JP)
  Receive Date: 20131216
  Receipt Date: 20140311
  Transmission Date: 20141002
  Serious: Yes (Life-Threatening)
  Sender: FDA-Public Use
  Company Number: JP-AMGEN-JPNSP2013087391

PATIENT
  Age: 64 Year
  Sex: Female
  Weight: 39.9 kg

DRUGS (12)
  1. ENBREL [Suspect]
     Indication: RHEUMATOID ARTHRITIS
     Dosage: 25 MG, 2X/WEEK
     Route: 058
     Dates: start: 20120326, end: 20130206
  2. PREDNISOLONE [Concomitant]
     Indication: COLLAGEN DISORDER
     Dosage: 9 MG, QD
     Route: 048
     Dates: start: 20121026, end: 20130221
  3. PREDNISOLONE [Concomitant]
     Indication: POLYMYOSITIS
     Dosage: 30 MG, QD
     Route: 041
     Dates: start: 20130219, end: 20130224
  4. PREDNISOLONE [Concomitant]
     Indication: SYSTEMIC LUPUS ERYTHEMATOSUS
     Dosage: 40 MG, (6 TABLETS IN THE MORNING, 2 TABLETS IN THE EVENING) ONCE DAILY
     Route: 048
     Dates: start: 20130225, end: 20130313
  5. PREDNISOLONE [Concomitant]
     Dosage: 35 MG, (5 TABLETS IN THE MORNING, 2 TABLETS IN THE AFTERNOON) ONCE DAILY
     Route: 048
     Dates: start: 20130314, end: 20130401
  6. PREDNISOLONE [Concomitant]
     Dosage: 30 MG, (4 TABLETS IN THE MORNING, 2 TABLETS IN THE AFTERNOON) ONCE DAILY
     Route: 048
     Dates: start: 20130402, end: 20130417
  7. TAKEPRON [Concomitant]
     Indication: PROPHYLAXIS
     Dosage: 15 MG, DAILY
     Route: 048
     Dates: start: 20120328, end: 20130204
  8. TAKEPRON [Concomitant]
     Dosage: 30 MG, DAILY
     Route: 048
     Dates: start: 20130205
  9. VENA                               /00000402/ [Concomitant]
     Dosage: 10 MG, UNK
     Route: 048
     Dates: start: 20120326, end: 20130206
  10. LIPITOR [Concomitant]
     Indication: LIPIDS ABNORMAL
     Dosage: 10 MG, 1X/DAY
     Route: 048
     Dates: start: 20111213
  11. ALLELOCK [Concomitant]
     Indication: ECZEMA ASTEATOTIC
     Dosage: 15 MG, DAILY
     Route: 048
     Dates: start: 20120911, end: 20130130
  12. ZYRTEC [Concomitant]
     Indication: ECZEMA ASTEATOTIC
     Dosage: 1 DF, UNK
     Route: 048
     Dates: start: 20120926, end: 20130130

REACTIONS (2)
  - Systemic lupus erythematosus [Recovering/Resolving]
  - Polymyositis [Recovering/Resolving]
